FAERS Safety Report 24090710 (Version 1)
Quarter: 2024Q3

REPORT INFORMATION
  Report Type: Spontaneous
  Country: GB (occurrence: GB)
  Receive Date: 20240715
  Receipt Date: 20240715
  Transmission Date: 20241017
  Serious: Yes (Other)
  Sender: TEVA
  Company Number: None

PATIENT
  Sex: Male

DRUGS (1)
  1. ESCITALOPRAM [Suspect]
     Active Substance: ESCITALOPRAM OXALATE
     Indication: Adjustment disorder with mixed anxiety and depressed mood
     Dosage: 10MG?10 003
     Route: 065

REACTIONS (3)
  - Erectile dysfunction [Not Recovered/Not Resolved]
  - Ejaculation failure [Not Recovered/Not Resolved]
  - Product use in unapproved indication [Unknown]
